FAERS Safety Report 12572831 (Version 2)
Quarter: 2017Q3

REPORT INFORMATION
  Report Type: Spontaneous
  Country: US (occurrence: US)
  Receive Date: 20160720
  Receipt Date: 20170810
  Transmission Date: 20171127
  Serious: Yes (Hospitalization, Other)
  Sender: FDA-Public Use
  Company Number: US-WEST-WARD PHARMACEUTICALS CORP.-US-H14001-16-01327

PATIENT
  Age: 61 Year
  Sex: Female

DRUGS (9)
  1. FOLINIC ACID [Concomitant]
     Active Substance: LEUCOVORIN
     Indication: PANCREATIC CARCINOMA
     Route: 065
  2. LORAZEPAM. [Interacting]
     Active Substance: LORAZEPAM
     Indication: ANXIETY
     Route: 048
  3. LORAZEPAM. [Interacting]
     Active Substance: LORAZEPAM
     Route: 048
  4. LORAZEPAM. [Suspect]
     Active Substance: LORAZEPAM
     Indication: PREMEDICATION
     Route: 042
  5. OLANZAPINE. [Interacting]
     Active Substance: OLANZAPINE
     Indication: PROPHYLAXIS OF NAUSEA AND VOMITING
  6. FLUOROURACIL. [Concomitant]
     Active Substance: FLUOROURACIL
     Indication: PANCREATIC CARCINOMA
     Dosage: 2000 MG/M2 OVER 46 HOURS
     Route: 042
  7. OLANZAPINE. [Interacting]
     Active Substance: OLANZAPINE
     Indication: NAUSEA
     Route: 048
  8. LORAZEPAM. [Suspect]
     Active Substance: LORAZEPAM
     Indication: NAUSEA
     Route: 048
  9. OXALIPLATIN. [Concomitant]
     Active Substance: OXALIPLATIN
     Indication: PANCREATIC CARCINOMA
     Dosage: 60 MG/M2 OVER 2 HOURS
     Route: 042

REACTIONS (5)
  - Toxicity to various agents [Recovered/Resolved]
  - Hypotension [Recovered/Resolved]
  - Drug interaction [Recovered/Resolved]
  - Respiratory depression [Recovered/Resolved]
  - Delirium [Recovered/Resolved]
